FAERS Safety Report 7604079-5 (Version None)
Quarter: 2011Q3

REPORT INFORMATION
  Report Type: 
  Country: None (occurrence: None)
  Receive Date: 20110712
  Receipt Date: 20110707
  Transmission Date: 20111222
  Serious: Yes (Other)
  Sender: FDA-Public Use
  Company Number: US-BRISTOL-MYERS SQUIBB COMPANY-15881493

PATIENT
  Age: 51 Year
  Sex: Female

DRUGS (10)
  1. EFFEXOR [Suspect]
     Indication: OBSESSIVE-COMPULSIVE DISORDER
     Dosage: TABS,75MG DAILY
     Route: 048
  2. KLONOPIN [Suspect]
     Indication: MUSCLE TIGHTNESS
     Dosage: TAB
     Route: 048
     Dates: start: 20110603, end: 20110101
  3. EFFEXOR [Suspect]
     Indication: BIPOLAR DISORDER
     Dosage: TABS,75MG DAILY
     Route: 048
  4. EFFEXOR [Suspect]
     Indication: DEPRESSION
     Dosage: TABS,75MG DAILY
     Route: 048
  5. KLONOPIN [Suspect]
     Indication: MANIA
     Dosage: TAB
     Route: 048
     Dates: start: 20110603, end: 20110101
  6. XANAX [Suspect]
     Dates: end: 20110101
  7. TRILEPTAL [Concomitant]
     Indication: GLUTAMATE DEHYDROGENASE INCREASED
     Route: 048
  8. ABILIFY [Suspect]
     Indication: MOOD SWINGS
     Route: 048
     Dates: start: 20110301
  9. SAPHRIS [Suspect]
     Indication: MOOD SWINGS
     Dosage: TAB
     Route: 060
     Dates: start: 20110331
  10. KLONOPIN [Suspect]
     Indication: ANXIETY DISORDER
     Dosage: TAB
     Route: 048
     Dates: start: 20110603, end: 20110101

REACTIONS (3)
  - WEIGHT INCREASED [None]
  - MANIA [None]
  - SEROTONIN SYNDROME [None]
